FAERS Safety Report 5413832-8 (Version None)
Quarter: 2007Q3

REPORT INFORMATION
  Report Type: 
  Country: None (occurrence: None)
  Receive Date: 20070814
  Receipt Date: 20061208
  Transmission Date: 20080115
  Serious: No
  Sender: FDA-Public Use
  Company Number: US-BRISTOL-MYERS SQUIBB COMPANY-13612551

PATIENT

DRUGS (3)
  1. REYATAZ [Suspect]
  2. NORVIR [Suspect]
  3. TRUVADA [Suspect]

REACTIONS (1)
  - BLOOD CORTICOTROPHIN DECREASED [None]
